FAERS Safety Report 8354607-X (Version None)
Quarter: 2012Q2

REPORT INFORMATION
  Report Type: 
  Country: None (occurrence: None)
  Receive Date: 20120511
  Receipt Date: 20120507
  Transmission Date: 20120825
  Serious: Yes (Life-Threatening, Hospitalization)
  Sender: FDA-Public Use
  Company Number: JP-MERCK-1203USA02218

PATIENT
  Age: 80 Year
  Sex: Male
  Weight: 53 kg

DRUGS (4)
  1. HUMALOG [Concomitant]
     Indication: DIABETES MELLITUS
     Dosage: 12 UNITS AND 6 UNITS TWICE
     Route: 058
  2. JANUVIA [Suspect]
     Indication: DIABETES MELLITUS
     Route: 048
     Dates: start: 20120209, end: 20120309
  3. TICLOPIDINE HCL [Concomitant]
     Route: 048
     Dates: end: 20120309
  4. LIVALO [Concomitant]
     Indication: HYPERCHOLESTEROLAEMIA
     Route: 048
     Dates: start: 20090910, end: 20120309

REACTIONS (2)
  - HEPATIC FUNCTION ABNORMAL [None]
  - DECREASED APPETITE [None]
